FAERS Safety Report 10082248 (Version 2)
Quarter: 2014Q2

REPORT INFORMATION
  Report Type: Spontaneous
  Country: US (occurrence: US)
  Receive Date: 20140416
  Receipt Date: 20140416
  Transmission Date: 20141212
  Serious: Yes (Hospitalization)
  Sender: FDA-Public Use
  Company Number: US-B.I. PHARMACEUTICALS,INC./RIDGEFIELD-2013-BI-15624BP

PATIENT
  Sex: Female
  Weight: 60.78 kg

DRUGS (30)
  1. PRADAXA [Suspect]
     Indication: CEREBROVASCULAR ACCIDENT PROPHYLAXIS
     Route: 065
     Dates: start: 201104, end: 201107
  2. PRADAXA [Suspect]
     Indication: THROMBOSIS PROPHYLAXIS
  3. ZOFRAN [Concomitant]
     Route: 065
  4. LANTUS [Concomitant]
     Route: 065
  5. TEGRETOL [Concomitant]
     Route: 065
  6. TIZANIDINE [Concomitant]
     Route: 065
  7. CHLORIDE [Concomitant]
     Route: 065
  8. BYSTOLIC [Concomitant]
     Route: 065
  9. PROMETHAZINE [Concomitant]
     Route: 065
  10. METHOTREXATE [Concomitant]
     Route: 065
  11. PREDNISONE [Concomitant]
     Route: 065
  12. LYRICA [Concomitant]
     Route: 065
  13. PLAQUENIL [Concomitant]
     Route: 065
  14. TEKTURNA [Concomitant]
     Route: 065
  15. NEURONTIN [Concomitant]
     Route: 065
  16. CARDIZEM [Concomitant]
     Route: 065
  17. ADVAIR [Concomitant]
     Route: 065
  18. PROAIR HFA [Concomitant]
     Route: 065
  19. DUONEB [Concomitant]
     Route: 065
  20. MAGNESIUM [Concomitant]
     Route: 065
  21. NASONEX [Concomitant]
     Route: 065
  22. NITROGLYCERIN [Concomitant]
     Route: 065
  23. NOVOLOG [Concomitant]
     Route: 065
  24. COZAAR [Concomitant]
     Route: 065
  25. PYRIDIUM [Concomitant]
     Route: 065
  26. TUSSEND [Concomitant]
     Route: 065
  27. FIORICET [Concomitant]
     Route: 065
  28. TIKOSYN [Concomitant]
     Route: 065
  29. TOPROL [Concomitant]
     Route: 065
  30. GERITOL [Concomitant]
     Route: 065

REACTIONS (3)
  - Gastrointestinal haemorrhage [Unknown]
  - Epistaxis [Unknown]
  - Vaginal haemorrhage [Unknown]
